FAERS Safety Report 7941958-3 (Version None)
Quarter: 2011Q4

REPORT INFORMATION
  Report Type: 
  Country: None (occurrence: None)
  Receive Date: 20111122
  Receipt Date: 20111110
  Transmission Date: 20120403
  Serious: Yes (Other)
  Sender: FDA-Public Use
  Company Number: FK201102617

PATIENT
  Age: 59 Year
  Sex: Male

DRUGS (4)
  1. CETUXIMAB (CETUXIMAB) (CETUXIMAB) [Suspect]
     Indication: COLORECTAL CANCER METASTATIC
     Dosage: SEE IMAGE
     Route: 042
  2. FLUOROURACIL [Suspect]
     Indication: COLORECTAL CANCER METASTATIC
     Dosage: 1650 MG/M2, INTRAVENOUS (NOT OTHERWISE SPECIFIED)
     Route: 042
  3. OXALIPLATIN [Suspect]
     Indication: COLORECTAL CANCER METASTATIC
     Dosage: 60 MG/M2
  4. LEUCOVORIN (LEUCOVORIN) (LEUCOVORIN) [Concomitant]

REACTIONS (2)
  - NEUROPATHY PERIPHERAL [None]
  - SKIN TOXICITY [None]
